FAERS Safety Report 16489673 (Version 3)
Quarter: 2019Q3

REPORT INFORMATION
  Report Type: Spontaneous
  Country: US (occurrence: US)
  Receive Date: 20190628
  Receipt Date: 20190821
  Transmission Date: 20191004
  Serious: No
  Sender: FDA-Public Use
  Company Number: US-PFIZER INC-2019277685

PATIENT
  Age: 77 Year
  Sex: Female

DRUGS (1)
  1. XALKORI [Suspect]
     Active Substance: CRIZOTINIB
     Indication: SMALL INTESTINE CARCINOMA
     Dosage: 250 MG, UNK

REACTIONS (3)
  - Dizziness [Unknown]
  - Off label use [Unknown]
  - Product use in unapproved indication [Unknown]
